FAERS Safety Report 19884937 (Version 1)
Quarter: 2021Q3

REPORT INFORMATION
  Report Type: Spontaneous
  Country: US (occurrence: US)
  Receive Date: 20210927
  Receipt Date: 20210927
  Transmission Date: 20211014
  Serious: No
  Sender: FDA-Public Use
  Company Number: US-SA-2021SA316800

PATIENT
  Age: 72 Year
  Sex: Male

DRUGS (2)
  1. KEVZARA [Suspect]
     Active Substance: SARILUMAB
     Indication: RHEUMATOID ARTHRITIS
     Dosage: 200 MG, QOW
     Route: 058
     Dates: start: 20210831
  2. RINVOQ [Concomitant]
     Active Substance: UPADACITINIB
     Dosage: UNK

REACTIONS (2)
  - Fatigue [Not Recovered/Not Resolved]
  - Sluggishness [Not Recovered/Not Resolved]

NARRATIVE: CASE EVENT DATE: 2021
